FAERS Safety Report 5925861-6 (Version None)
Quarter: 2008Q4

REPORT INFORMATION
  Report Type: 
  Country: None (occurrence: None)
  Receive Date: 20081021
  Receipt Date: 20081009
  Transmission Date: 20090506
  Serious: Yes (Death, Other)
  Sender: FDA-Public Use
  Company Number: GB-WYE-G00946108

PATIENT
  Age: 39 Year
  Sex: Male
  Weight: 122 kg

DRUGS (7)
  1. EFFEXOR [Suspect]
     Indication: NARCOLEPSY
     Route: 048
     Dates: start: 20070724
  2. EFFEXOR [Suspect]
     Indication: CATAPLEXY
  3. SODIUM OXYBATE [Suspect]
     Indication: NARCOLEPSY
     Route: 048
     Dates: start: 20071211, end: 20071201
  4. SODIUM OXYBATE [Suspect]
     Route: 048
     Dates: start: 20071201, end: 20071230
  5. OMEPRAZOLE [Concomitant]
     Dosage: UNKNOWN
  6. DEXAMFETAMINE [Suspect]
     Indication: NARCOLEPSY
     Dosage: UNKNOWN
     Route: 048
     Dates: start: 20060502
  7. DEXAMFETAMINE [Suspect]
     Indication: CATAPLEXY

REACTIONS (3)
  - HAEMATEMESIS [None]
  - HALLUCINATIONS, MIXED [None]
  - SUDDEN DEATH [None]
